FAERS Safety Report 8778706 (Version 1)
Quarter: 2012Q4

REPORT INFORMATION
  Report Type: 
  Country: US (occurrence: US)
  Receive Date: 20120912
  Receipt Date: 20120912
  Transmission Date: 20130627
  Serious: No
  Sender: FDA-Public Use
  Company Number: US-PFIZER INC-2012223747

PATIENT
  Age: 88 Year
  Sex: Female
  Weight: 54.42 kg

DRUGS (1)
  1. LYRICA [Suspect]
     Indication: HERPES ZOSTER
     Dosage: 75 mg, 2x/day
     Route: 048
     Dates: start: 20120823

REACTIONS (3)
  - Chest discomfort [Not Recovered/Not Resolved]
  - Emotional disorder [Unknown]
  - Joint swelling [Not Recovered/Not Resolved]
